FAERS Safety Report 7338785-7 (Version None)
Quarter: 2011Q1

REPORT INFORMATION
  Report Type: 
  Country: None (occurrence: None)
  Receive Date: 20110308
  Receipt Date: 20110302
  Transmission Date: 20110831
  Serious: Yes (Other)
  Sender: FDA-Public Use
  Company Number: BR-PFIZER INC-2011042748

PATIENT
  Age: 70 Year
  Sex: Male
  Weight: 112 kg

DRUGS (4)
  1. ATENOLOL [Concomitant]
     Dosage: UNK
     Dates: start: 20070101
  2. LONITEN [Suspect]
     Indication: HYPERTENSION
     Dosage: UNK, 1X/DAY
     Route: 048
     Dates: start: 20080101, end: 20110223
  3. ZANIDIP [Concomitant]
     Dosage: UNK
     Dates: start: 20070101
  4. LOSARTAN [Concomitant]
     Dosage: UNK
     Dates: start: 20070101

REACTIONS (1)
  - GOUT [None]
